FAERS Safety Report 12201022 (Version 2)
Quarter: 2016Q1

REPORT INFORMATION
  Report Type: Spontaneous
  Country: US (occurrence: US)
  Receive Date: 20160322
  Receipt Date: 20160330
  Transmission Date: 20160526
  Serious: Yes (Other)
  Sender: FDA-Public Use
  Company Number: US-TEVA-644363USA

PATIENT
  Age: 50 Year
  Sex: Female

DRUGS (1)
  1. ZECUITY [Suspect]
     Active Substance: SUMATRIPTAN SUCCINATE
     Route: 062
     Dates: start: 201603, end: 201603

REACTIONS (7)
  - Complication of device removal [Unknown]
  - Blood blister [Unknown]
  - Device use error [Unknown]
  - Application site erythema [Recovered/Resolved]
  - Application site burn [Unknown]
  - Application site vesicles [Unknown]
  - Application site pain [Unknown]

NARRATIVE: CASE EVENT DATE: 201603
